FAERS Safety Report 8484557-X (Version None)
Quarter: 2012Q3

REPORT INFORMATION
  Report Type: 
  Country: None (occurrence: None)
  Receive Date: 20120703
  Receipt Date: 20120621
  Transmission Date: 20120928
  Serious: Yes (Hospitalization)
  Sender: FDA-Public Use
  Company Number: FR-PFIZER INC-2012156865

PATIENT
  Age: 81 Year
  Sex: Female

DRUGS (11)
  1. ATARAX [Suspect]
     Dosage: UNK
     Dates: start: 20120530
  2. NEXIUM [Concomitant]
     Dosage: UNK
     Dates: end: 20110101
  3. PAROXETINE HCL [Suspect]
     Dosage: UNK
     Route: 048
     Dates: start: 20120530, end: 20120601
  4. PERINDOPRIL ERBUMINE [Concomitant]
     Dosage: UNK
  5. SIMVASTATIN [Concomitant]
     Dosage: UNK
  6. EUPRESSYL [Concomitant]
     Dosage: UNK
  7. NITROGLYCERIN [Concomitant]
     Dosage: UNK
  8. ALPRAZOLAM [Suspect]
     Dosage: UNK
     Dates: start: 20120530
  9. SAXAGLIPTIN [Concomitant]
     Dosage: UNK
  10. SOTALOL [Concomitant]
     Dosage: UNK
  11. LEVOTHYROXINE SODIUM [Concomitant]
     Dosage: UNK

REACTIONS (3)
  - HYPONATRAEMIA [None]
  - VOMITING [None]
  - ABDOMINAL PAIN UPPER [None]
